FAERS Safety Report 16267748 (Version 1)
Quarter: 2019Q2

REPORT INFORMATION
  Report Type: Spontaneous
  Country: FR (occurrence: FR)
  Receive Date: 20190503
  Receipt Date: 20190503
  Transmission Date: 20190711
  Serious: Yes (Hospitalization)
  Sender: FDA-Public Use
  Company Number: FR-TEVA-2019-FR-1044016

PATIENT
  Age: 32 Year
  Sex: Male

DRUGS (2)
  1. ASPIRINE [Suspect]
     Active Substance: ASPIRIN
     Indication: PAIN
     Dosage: 1 TOTAL
     Route: 048
     Dates: start: 20181201, end: 20181201
  2. IBUPROFENE [Suspect]
     Active Substance: IBUPROFEN
     Indication: PAIN
     Dosage: 1 TOTAL
     Route: 048
     Dates: start: 20181201, end: 20181201

REACTIONS (1)
  - Hypersensitivity [Recovered/Resolved]

NARRATIVE: CASE EVENT DATE: 20181201
